FAERS Safety Report 4471030-9 (Version None)
Quarter: 2004Q4

REPORT INFORMATION
  Report Type: 
  Country: None (occurrence: None)
  Receive Date: 20041011
  Receipt Date: 20040804
  Transmission Date: 20050328
  Serious: Yes (Death, Life-Threatening)
  Sender: FDA-Public Use
  Company Number: IE-GLAXOSMITHKLINE-B0341677A

PATIENT
  Age: 34 Year
  Sex: Female
  Weight: 70 kg

DRUGS (5)
  1. LAMICTAL [Suspect]
     Indication: EPILEPSY
     Dosage: 25MG AT NIGHT
     Dates: start: 20040721
  2. PHENYTOIN [Concomitant]
     Indication: EPILEPSY
     Dosage: 100U PER DAY
  3. CARBAMAZEPINE [Concomitant]
     Indication: EPILEPSY
     Dosage: 500MG TWICE PER DAY
  4. FRISIUM [Concomitant]
     Dosage: 10MG THREE TIMES PER DAY
  5. FOLIC ACID [Concomitant]

REACTIONS (22)
  - ABDOMINAL PAIN LOWER [None]
  - ABDOMINAL TENDERNESS [None]
  - AGGRESSION [None]
  - AGITATION [None]
  - CONFUSIONAL STATE [None]
  - CONTUSION [None]
  - CONVULSION [None]
  - DISSEMINATED INTRAVASCULAR COAGULATION [None]
  - DYSARTHRIA [None]
  - FLUSHING [None]
  - INFLUENZA LIKE ILLNESS [None]
  - JAUNDICE [None]
  - LIVER TENDERNESS [None]
  - LYMPHADENITIS [None]
  - MENINGOCOCCAL INFECTION [None]
  - MULTI-ORGAN FAILURE [None]
  - PHARYNGOLARYNGEAL PAIN [None]
  - PYREXIA [None]
  - RED BLOOD CELL SEDIMENTATION RATE INCREASED [None]
  - SCLERAL HYPERAEMIA [None]
  - STEVENS-JOHNSON SYNDROME [None]
  - TERATOGENICITY [None]
